FAERS Safety Report 11691092 (Version 2)
Quarter: 2015Q4

REPORT INFORMATION
  Report Type: Spontaneous
  Country: FR (occurrence: FR)
  Receive Date: 20151102
  Receipt Date: 20151113
  Transmission Date: 20160304
  Serious: Yes (Death)
  Sender: FDA-Public Use
  Company Number: FR-009507513-1511FRA000608

PATIENT
  Age: 73 Year
  Sex: Male

DRUGS (9)
  1. OXYCONTIN [Suspect]
     Active Substance: OXYCODONE HYDROCHLORIDE
     Dosage: UNK
     Route: 048
  2. CYAMEMAZINE [Suspect]
     Active Substance: CYAMEMAZINE
     Route: 030
  3. GALANTAMINE. [Suspect]
     Active Substance: GALANTAMINE
     Route: 048
  4. OXYNORM [Suspect]
     Active Substance: OXYCODONE HYDROCHLORIDE
     Dosage: UNK
     Route: 048
  5. POLYETHYLENE GLYCOL 3350. [Suspect]
     Active Substance: POLYETHYLENE GLYCOL 3350
     Indication: PRODUCT USED FOR UNKNOWN INDICATION
     Dosage: UNK
     Route: 048
  6. ATACAND [Suspect]
     Active Substance: CANDESARTAN CILEXETIL
     Route: 048
  7. ATENOLOL. [Suspect]
     Active Substance: ATENOLOL
     Route: 048
  8. ACEPROMETAZINE MALEATE (+) MEPROBAMATE [Suspect]
     Active Substance: ACEPROMETAZINE MALEATE\MEPROBAMATE
     Route: 048
  9. PREVISCAN [Suspect]
     Active Substance: FLUINDIONE
     Route: 048

REACTIONS (6)
  - Eye movement disorder [Fatal]
  - Loss of consciousness [Fatal]
  - Cyanosis [Fatal]
  - Dyspnoea [Fatal]
  - Urinary incontinence [Fatal]
  - Death [Fatal]
